FAERS Safety Report 8168470-3 (Version None)
Quarter: 2012Q1

REPORT INFORMATION
  Report Type: 
  Country: None (occurrence: None)
  Receive Date: 20120103
  Receipt Date: 20111103
  Transmission Date: 20120608
  Serious: No
  Sender: FDA-Public Use
  Company Number: AE-2011-003042

PATIENT
  Age: 39 Year
  Sex: Female
  Weight: 64.4108 kg

DRUGS (3)
  1. RIBABVIRIN (RIBAVIRIN) [Concomitant]
  2. INCIVEK [Suspect]
     Dosage: 2250 MG (750 MG, 8 HR), ORAL
     Route: 048
     Dates: start: 20110924, end: 20111022
  3. PEGASYS [Concomitant]

REACTIONS (1)
  - DRUG INEFFECTIVE [None]
